FAERS Safety Report 4362007-2 (Version None)
Quarter: 2004Q2

REPORT INFORMATION
  Report Type: 
  Country: None (occurrence: None)
  Receive Date: 20040521
  Receipt Date: 20040212
  Transmission Date: 20050107
  Serious: Yes (Hospitalization)
  Sender: FDA-Public Use
  Company Number: US-GLAXOSMITHKLINE-A0498201A

PATIENT
  Age: 34 Year
  Sex: Female

DRUGS (3)
  1. WELLBUTRIN XL [Suspect]
     Indication: DEPRESSION
     Dosage: 300MG IN THE MORNING
     Route: 048
     Dates: start: 20030925, end: 20040206
  2. XANAX [Concomitant]
     Indication: ILL-DEFINED DISORDER
     Dosage: .5MG THREE TIMES PER DAY
  3. HERBAL MEDICINE [Concomitant]
     Indication: WEIGHT CONTROL
     Route: 048
     Dates: start: 20040205

REACTIONS (1)
  - CONVULSION [None]
